FAERS Safety Report 4450777-4 (Version None)
Quarter: 2004Q3

REPORT INFORMATION
  Report Type: 
  Country: None (occurrence: None)
  Receive Date: 20040914
  Receipt Date: 20040914
  Transmission Date: 20050211
  Serious: No
  Sender: FDA-Public Use
  Company Number: None

PATIENT
  Age: 59 Year
  Sex: Female
  Weight: 90.2658 kg

DRUGS (1)
  1. EFFEXOR XR  150MG + 75 MG  WYETH [Suspect]
     Indication: DEPRESSION
     Dosage: 150MG+75MG  DAILY  ORAL
     Route: 048
     Dates: start: 20030930, end: 20040827

REACTIONS (1)
  - TARDIVE DYSKINESIA [None]
